FAERS Safety Report 15415714 (Version 1)
Quarter: 2018Q3

REPORT INFORMATION
  Report Type: Spontaneous
  Country: HU (occurrence: HU)
  Receive Date: 20180922
  Receipt Date: 20180922
  Transmission Date: 20181010
  Serious: Yes (Other)
  Sender: FDA-Public Use
  Company Number: HU-ACCORD-072738

PATIENT
  Age: 65 Year
  Sex: Female

DRUGS (9)
  1. FLUOROURACIL. [Suspect]
     Active Substance: FLUOROURACIL
     Indication: COLORECTAL CANCER METASTATIC
     Dosage: 13 CYCLES
  2. IRINOTECAN [Concomitant]
     Active Substance: IRINOTECAN
     Indication: COLORECTAL CANCER METASTATIC
  3. TRIFLURIDINE/TIPIRACIL [Concomitant]
     Indication: COLORECTAL CANCER METASTATIC
  4. FOLINIC ACID [Suspect]
     Active Substance: LEUCOVORIN
     Indication: COLORECTAL CANCER METASTATIC
  5. BEVACIZUMAB. [Concomitant]
     Active Substance: BEVACIZUMAB
     Indication: COLORECTAL CANCER METASTATIC
     Dosage: 13 TREATMENTS
  6. CETUXIMAB. [Concomitant]
     Active Substance: CETUXIMAB
     Indication: COLORECTAL CANCER METASTATIC
  7. OXALIPLATIN. [Suspect]
     Active Substance: OXALIPLATIN
     Indication: COLORECTAL CANCER METASTATIC
  8. CAPECITABINE. [Concomitant]
     Active Substance: CAPECITABINE
     Indication: COLORECTAL CANCER METASTATIC
     Dosage: TOTAL OF 2 CYCLES
  9. DOXORUBICIN [Concomitant]
     Active Substance: DOXORUBICIN
     Indication: COLORECTAL CANCER METASTATIC

REACTIONS (5)
  - Cholecystitis [Unknown]
  - Blood pressure increased [Unknown]
  - Palmar-plantar erythrodysaesthesia syndrome [Unknown]
  - Phlebitis [Unknown]
  - Thrombophlebitis [Unknown]
